FAERS Safety Report 9390773 (Version 2)
Quarter: 2013Q4

REPORT INFORMATION
  Report Type: Spontaneous
  Country: US (occurrence: US)
  Receive Date: 20130709
  Receipt Date: 20131111
  Transmission Date: 20140711
  Serious: Yes (Hospitalization)
  Sender: FDA-Public Use
  Company Number: US-BAYER-2013-080650

PATIENT
  Age: 23 Year
  Sex: Female
  Weight: 54.42 kg

DRUGS (1)
  1. MIRENA [Suspect]
     Dosage: 20 MCG/24HR, CONT
     Route: 015
     Dates: start: 20090526, end: 20091128

REACTIONS (10)
  - Uterine perforation [None]
  - Genital haemorrhage [None]
  - Post procedural discomfort [None]
  - Metrorrhagia [None]
  - Injury [None]
  - Medical device pain [None]
  - Abdominal pain lower [None]
  - Infection [None]
  - Weight decreased [None]
  - Dyspepsia [None]
